FAERS Safety Report 10147215 (Version 1)
Quarter: 2014Q2

REPORT INFORMATION
  Report Type: Spontaneous
  Country: NO (occurrence: NO)
  Receive Date: 20140501
  Receipt Date: 20140501
  Transmission Date: 20141212
  Serious: Yes (Other)
  Sender: FDA-Public Use
  Company Number: PHHY2014NO051407

PATIENT
  Age: 48 Year
  Sex: Female

DRUGS (6)
  1. GILENYA [Suspect]
     Indication: MULTIPLE SCLEROSIS
     Dosage: 0.5 MG, QD
     Route: 048
     Dates: start: 20130901, end: 20140403
  2. LYRICA [Concomitant]
     Dosage: 75 MG, BID
     Route: 048
  3. SURMONTIL//TRIMIPRAMINE [Concomitant]
     Dosage: 10-30 MG, BEFORE SLEEP
     Route: 048
  4. MOVICOL [Concomitant]
     Route: 048
  5. OXYCONTIN [Concomitant]
     Indication: PAIN
     Dosage: 30 MG, QID
     Route: 048
  6. IMOVANE [Concomitant]
     Dosage: 7.5 MG, QD
     Route: 048

REACTIONS (1)
  - Lip oedema [Recovered/Resolved]
